FAERS Safety Report 4457489-1 (Version None)
Quarter: 2004Q3

REPORT INFORMATION
  Report Type: 
  Country: None (occurrence: None)
  Receive Date: 20040922
  Receipt Date: 20040910
  Transmission Date: 20050211
  Serious: Yes (Hospitalization)
  Sender: FDA-Public Use
  Company Number: 208982

PATIENT
  Age: 5 Year
  Sex: Male

DRUGS (2)
  1. AVASTIN [Suspect]
     Indication: VASCULAR OCCLUSION
     Dosage: 3 MG/KG, SINGLE, INTRAVENOUS
     Route: 042
     Dates: start: 20040901, end: 20040901
  2. DALTEPARIN (DALTEPARIN SODIUM) [Concomitant]

REACTIONS (5)
  - BLOOD ALBUMIN DECREASED [None]
  - CEREBELLAR HAEMORRHAGE [None]
  - CEREBRAL INFARCTION [None]
  - FIBRIN D DIMER INCREASED [None]
  - LABORATORY TEST ABNORMAL [None]
